FAERS Safety Report 5446566-4 (Version None)
Quarter: 2007Q3

REPORT INFORMATION
  Report Type: 
  Country: None (occurrence: None)
  Receive Date: 20070907
  Receipt Date: 20070827
  Transmission Date: 20080115
  Serious: Yes (Other)
  Sender: FDA-Public Use
  Company Number: HQWYE020106SEP07

PATIENT

DRUGS (2)
  1. SIROLIMUS [Suspect]
     Indication: PROPHYLAXIS AGAINST TRANSPLANT REJECTION
     Dosage: 12-HR TROUGH LEVELS WERE 8-10 NG/ML DURING FIRST 6 MONTHS OF THERAPY; 6-8 NG/ML THEREAFTER
  2. PROGRAF [Concomitant]
     Indication: PROPHYLAXIS AGAINST TRANSPLANT REJECTION
     Dosage: TARGET 12-HR TROUGH LEVELS OF 8-12 NG/ML 1ST 3 MONTHS; 8-10 NG/ML 4-6 MONTHS; 6-8 NG/ML THEREAFTER

REACTIONS (2)
  - CHRONIC ALLOGRAFT NEPHROPATHY [None]
  - COMPLICATIONS OF TRANSPLANT SURGERY [None]
